FAERS Safety Report 9571531 (Version 5)
Quarter: 2013Q4

REPORT INFORMATION
  Report Type: Spontaneous
  Country: US (occurrence: US)
  Receive Date: 20131001
  Receipt Date: 20131024
  Transmission Date: 20140711
  Serious: Yes (Death, Hospitalization)
  Sender: FDA-Public Use
  Company Number: US-JNJFOC-20130917046

PATIENT
  Sex: Male

DRUGS (4)
  1. XARELTO [Suspect]
     Indication: CEREBROVASCULAR ACCIDENT PROPHYLAXIS
     Route: 048
  2. XARELTO [Suspect]
     Indication: ATRIAL FIBRILLATION
     Route: 048
  3. HEPARIN [Suspect]
     Indication: PRODUCT USED FOR UNKNOWN INDICATION
     Route: 065
     Dates: start: 2013
  4. FACTOR VIIA, RECOMBINANT [Suspect]
     Indication: HAEMORRHAGE PROPHYLAXIS
     Route: 065
     Dates: start: 2013

REACTIONS (4)
  - Cerebral thrombosis [Fatal]
  - Hypercoagulation [Unknown]
  - Acute coronary syndrome [Unknown]
  - Haemorrhage [Unknown]
